FAERS Safety Report 25029926 (Version 1)
Quarter: 2025Q1

REPORT INFORMATION
  Report Type: Spontaneous
  Country: US (occurrence: US)
  Receive Date: 20250303
  Receipt Date: 20250303
  Transmission Date: 20250408
  Serious: Yes (Hospitalization, Other)
  Sender: NOVARTIS
  Company Number: US-002147023-NVSC2025US029720

PATIENT
  Sex: Female

DRUGS (9)
  1. LETROZOLE [Suspect]
     Active Substance: LETROZOLE
     Indication: Product used for unknown indication
     Dosage: 2.5 MG, QD
     Route: 065
     Dates: start: 20230426
  2. TUKYSA [Suspect]
     Active Substance: TUCATINIB
     Indication: Product used for unknown indication
     Route: 048
  3. TUKYSA [Suspect]
     Active Substance: TUCATINIB
     Route: 048
  4. TUKYSA [Suspect]
     Active Substance: TUCATINIB
     Dosage: 250 MG, BID
     Route: 065
     Dates: start: 202404
  5. TUKYSA [Suspect]
     Active Substance: TUCATINIB
     Dosage: 250 MG, BID
     Route: 065
     Dates: start: 202405
  6. XELODA [Concomitant]
     Active Substance: CAPECITABINE
     Indication: Product used for unknown indication
     Dosage: 1500 MG, BID
     Route: 065
     Dates: start: 20231207
  7. XELODA [Concomitant]
     Active Substance: CAPECITABINE
     Dosage: 1000 MG, BID
     Route: 065
     Dates: start: 20240118
  8. XELODA [Concomitant]
     Active Substance: CAPECITABINE
     Dosage: 800 MG, BID
     Route: 065
     Dates: start: 202406
  9. TUCATINIB [Concomitant]
     Active Substance: TUCATINIB
     Indication: Product used for unknown indication
     Dosage: 200 MG, BID (150MG TAB + 50 MG TAB)
     Route: 065
     Dates: start: 20231207

REACTIONS (15)
  - Metastases to central nervous system [Unknown]
  - Asthenia [Unknown]
  - Hypokalaemia [Unknown]
  - Diarrhoea [Recovering/Resolving]
  - Herpes zoster [Unknown]
  - COVID-19 [Unknown]
  - Rash [Unknown]
  - Palmar-plantar erythrodysaesthesia syndrome [Unknown]
  - Dry skin [Unknown]
  - Arthralgia [Unknown]
  - Myalgia [Unknown]
  - Skin fissures [Unknown]
  - Pain in extremity [Unknown]
  - Intracranial mass [Unknown]
  - Dermatitis [Unknown]

NARRATIVE: CASE EVENT DATE: 20230808
